FAERS Safety Report 9719762 (Version 1)
Quarter: 2013Q4

REPORT INFORMATION
  Report Type: Spontaneous
  Country: US (occurrence: US)
  Receive Date: 20131128
  Receipt Date: 20131128
  Transmission Date: 20140711
  Serious: Yes (Other)
  Sender: FDA-Public Use
  Company Number: US-RB-060363-13

PATIENT
  Age: 54 Year
  Sex: Female

DRUGS (1)
  1. MUCINEX DM [Suspect]
     Indication: PRODUCT USED FOR UNKNOWN INDICATION
     Dosage: TOOK 1 TABLET ON 21-NOV-2013 AT 10PM
     Route: 048
     Dates: start: 20131121

REACTIONS (5)
  - Eye haemorrhage [Not Recovered/Not Resolved]
  - Musculoskeletal chest pain [Not Recovered/Not Resolved]
  - Oropharyngeal pain [Not Recovered/Not Resolved]
  - Cough [Unknown]
  - Insomnia [Recovered/Resolved]
